FAERS Safety Report 17858224 (Version 2)
Quarter: 2020Q2

REPORT INFORMATION
  Report Type: Report from Study
  Country: None (occurrence: US)
  Receive Date: 20200604
  Receipt Date: 20200605
  Transmission Date: 20200714
  Serious: No
  Sender: FDA-Public Use
  Company Number: US-US WORLDMEDS, LLC-USW201904-000807

PATIENT
  Age: 66 Year
  Sex: Female
  Weight: 61.23 kg

DRUGS (12)
  1. NEUPRO [Concomitant]
     Active Substance: ROTIGOTINE
  2. DILTIAZEM 24 [Concomitant]
  3. ASA [Concomitant]
     Active Substance: ASPIRIN
  4. BUSPIRONE HYDROCHLORIDE. [Concomitant]
     Active Substance: BUSPIRONE HYDROCHLORIDE
  5. METHYL FOLATE [Concomitant]
     Active Substance: LEVOMEFOLATE CALCIUM
  6. THORNE [Concomitant]
  7. D3 SUPPLEMENT [Concomitant]
  8. 5-HYDROXYTRYPTOPHAN [Concomitant]
     Active Substance: OXITRIPTAN
  9. APOKYN [Suspect]
     Active Substance: APOMORPHINE HYDROCHLORIDE
     Indication: PARKINSON^S DISEASE
     Route: 058
     Dates: start: 20190228
  10. PROPRANOLOL [Concomitant]
     Active Substance: PROPRANOLOL HYDROCHLORIDE
  11. OXCARBAZEPINE. [Concomitant]
     Active Substance: OXCARBAZEPINE
  12. L-TYROSINE [Concomitant]
     Active Substance: TYROSINE

REACTIONS (2)
  - Somnolence [Recovered/Resolved]
  - Nausea [Recovered/Resolved]

NARRATIVE: CASE EVENT DATE: 20190401
